FAERS Safety Report 13865308 (Version 1)
Quarter: 2017Q3

REPORT INFORMATION
  Report Type: Spontaneous
  Country: SK (occurrence: SK)
  Receive Date: 20170814
  Receipt Date: 20170814
  Transmission Date: 20171127
  Serious: Yes (Death, Other)
  Sender: FDA-Public Use
  Company Number: SK-GILEAD-2017-0287231

PATIENT
  Age: 53 Year
  Sex: Male
  Weight: 77 kg

DRUGS (9)
  1. COPEGUS [Concomitant]
     Active Substance: RIBAVIRIN
     Dosage: UNK
     Route: 065
     Dates: start: 20170526, end: 20170620
  2. SOVALDI [Suspect]
     Active Substance: SOFOSBUVIR
     Indication: HEPATOCELLULAR CARCINOMA
  3. VEROSPIRON [Concomitant]
     Active Substance: SPIRONOLACTONE
     Dosage: UNK
     Route: 065
     Dates: start: 20170526, end: 20170620
  4. RISPEN [Concomitant]
     Indication: SCHIZOPHRENIA
     Dosage: UNK
     Route: 065
     Dates: start: 20170526, end: 20170620
  5. SOVALDI [Suspect]
     Active Substance: SOFOSBUVIR
     Indication: CHRONIC HEPATITIS C
     Dosage: 400 MG, QD
     Route: 065
     Dates: start: 20170526, end: 20170620
  6. URSOFALK [Concomitant]
     Active Substance: URSODIOL
     Dosage: UNK
     Route: 065
     Dates: start: 20170526, end: 20170620
  7. LOSARTAN. [Concomitant]
     Active Substance: LOSARTAN
     Dosage: 50 MG, QD
     Route: 065
     Dates: start: 20170526, end: 20170620
  8. EGILOK [Concomitant]
     Active Substance: METOPROLOL TARTRATE
     Dosage: 50 MG, QD
     Route: 065
     Dates: start: 20170526, end: 20170620
  9. LAGOSA [Concomitant]
     Dosage: UNK
     Route: 065
     Dates: start: 20170526, end: 20170620

REACTIONS (5)
  - Death [Fatal]
  - Hypersomnia [Unknown]
  - Weight decreased [Unknown]
  - Off label use [Unknown]
  - Fatigue [Unknown]

NARRATIVE: CASE EVENT DATE: 20170526
